FAERS Safety Report 6330171-1 (Version None)
Quarter: 2009Q3

REPORT INFORMATION
  Report Type: 
  Country: None (occurrence: None)
  Receive Date: 20090827
  Receipt Date: 20071010
  Transmission Date: 20100115
  Serious: Yes (Other)
  Sender: FDA-Public Use
  Company Number: US-ASTRAZENECA-2006UW23936

PATIENT
  Age: 17006 Day
  Sex: Male
  Weight: 101.6 kg

DRUGS (24)
  1. SEROQUEL [Suspect]
     Dosage: 100 TO 400 MG
     Route: 048
     Dates: start: 20021210
  2. ARIPIPRAZOLE [Concomitant]
  3. HALOPERIDOL [Concomitant]
  4. RISPERDAL [Concomitant]
     Dosage: 0.5 TO 4 MG
     Dates: start: 19960101
  5. CHLORPROMAZINE [Concomitant]
  6. OLANZAPINE [Concomitant]
     Route: 048
     Dates: start: 20010101
  7. LIPITOR [Concomitant]
     Indication: HYPERLIPIDAEMIA
     Dosage: 10 TO 20 MG
     Dates: start: 20020812
  8. DIPHENHYDRAMINE HCL [Concomitant]
     Route: 048
     Dates: start: 20040224
  9. DEPAKOTE [Concomitant]
     Dosage: 500 TO 1500 MG
     Route: 048
     Dates: start: 20011113
  10. KLONOPIN [Concomitant]
     Route: 048
     Dates: start: 20011113
  11. DYAZIDE [Concomitant]
     Indication: GRAVITATIONAL OEDEMA
     Dates: start: 20020603
  12. ATIVAN [Concomitant]
     Route: 048
  13. CHLORPHENIRAMINE MALEATE [Concomitant]
     Dates: start: 20030716
  14. PROTONIX [Concomitant]
     Dates: start: 20030716
  15. ASPIRIN [Concomitant]
     Dates: start: 20030716
  16. LISINOPRIL [Concomitant]
     Dates: start: 20030716
  17. OMEPRAZOLE [Concomitant]
     Route: 048
     Dates: start: 20060119
  18. FLUOXETINE [Concomitant]
     Dosage: 20 TO 40 MG
     Route: 048
     Dates: start: 20050118
  19. PROPRANOLOL [Concomitant]
     Dosage: 10 TO 40 MG
     Route: 048
     Dates: start: 20050118
  20. NAPROXEN [Concomitant]
     Dosage: 375 TO 500 MG
     Route: 048
     Dates: start: 20061227
  21. PHENAZOPYRIDINE HCL TAB [Concomitant]
     Route: 048
     Dates: start: 20061227
  22. CITALOPRAM HYDROBROMIDE [Concomitant]
     Route: 048
     Dates: start: 20061227
  23. CIALIS [Concomitant]
     Route: 048
     Dates: start: 20061227
  24. LEVITRA [Concomitant]
     Route: 048
     Dates: start: 20061227

REACTIONS (3)
  - DIABETES MELLITUS [None]
  - DIABETIC NEPHROPATHY [None]
  - TYPE 1 DIABETES MELLITUS [None]
